FAERS Safety Report 10699268 (Version 2)
Quarter: 2015Q1

REPORT INFORMATION
  Report Type: Report from Study
  Country: DE (occurrence: DE)
  Receive Date: 20150108
  Receipt Date: 20150202
  Transmission Date: 20150721
  Serious: Yes (Hospitalization)
  Sender: FDA-Public Use
  Company Number: DE-ABBVIE-15K-062-1329811-00

PATIENT
  Age: 32 Year
  Sex: Female

DRUGS (1)
  1. HUMIRA [Suspect]
     Active Substance: ADALIMUMAB
     Indication: PSORIASIS
     Route: 058
     Dates: start: 20140601

REACTIONS (3)
  - Road traffic accident [Recovering/Resolving]
  - Patella fracture [Recovering/Resolving]
  - Tibia fracture [Recovering/Resolving]

NARRATIVE: CASE EVENT DATE: 20141211
